APPROVED DRUG PRODUCT: BLEOMYCIN SULFATE
Active Ingredient: BLEOMYCIN SULFATE
Strength: EQ 15 UNITS BASE/VIAL
Dosage Form/Route: INJECTABLE;INJECTION
Application: A065185 | Product #001 | TE Code: AP
Applicant: FRESENIUS KABI USA LLC
Approved: Jan 28, 2008 | RLD: No | RS: Yes | Type: RX